FAERS Safety Report 4410033-7 (Version None)
Quarter: 2004Q3

REPORT INFORMATION
  Report Type: 
  Country: None (occurrence: None)
  Receive Date: 20040726
  Receipt Date: 20040324
  Transmission Date: 20050211
  Serious: Yes (Hospitalization)
  Sender: FDA-Public Use
  Company Number: 2004AP01479

PATIENT
  Sex: Male

DRUGS (1)
  1. NEXIUM [Suspect]
     Indication: HAEMORRHAGE
     Dosage: 40 MG DAILY PO
     Route: 048

REACTIONS (3)
  - ABDOMINAL PAIN UPPER [None]
  - DIZZINESS [None]
  - HAEMATEMESIS [None]
